FAERS Safety Report 5019938-X (Version None)
Quarter: 2006Q2

REPORT INFORMATION
  Report Type: 
  Country: None (occurrence: None)
  Receive Date: 20060607
  Receipt Date: 20060531
  Transmission Date: 20061013
  Serious: Yes (Other)
  Sender: FDA-Public Use
  Company Number: 2006AC01045

PATIENT
  Age: 22131 Day
  Sex: Female

DRUGS (2)
  1. ARIMIDEX [Suspect]
     Indication: BREAST CANCER
     Route: 048
     Dates: start: 19981029, end: 20031006
  2. MITEN [Concomitant]
     Indication: HYPERTENSION
     Route: 048
     Dates: start: 20030220

REACTIONS (1)
  - CERVICAL POLYP [None]
